FAERS Safety Report 4947799-3 (Version None)
Quarter: 2006Q1

REPORT INFORMATION
  Report Type: 
  Country: None (occurrence: None)
  Receive Date: 20060320
  Receipt Date: 20060222
  Transmission Date: 20060701
  Serious: Yes (Hospitalization)
  Sender: FDA-Public Use
  Company Number: GB-GLAXOSMITHKLINE-B0413186A

PATIENT
  Age: 61 Year
  Sex: Female

DRUGS (3)
  1. MALARONE [Suspect]
     Indication: MALARIA PROPHYLAXIS
     Route: 048
     Dates: start: 20060103, end: 20060213
  2. ADCAL D3 [Concomitant]
     Route: 048
  3. CITALOPRAM HYDROBROMIDE [Concomitant]
     Dosage: 20MG PER DAY
     Route: 048

REACTIONS (2)
  - MALARIA [None]
  - NEURALGIA [None]
